FAERS Safety Report 13762574 (Version 4)
Quarter: 2019Q1

REPORT INFORMATION
  Report Type: Spontaneous
  Country: US (occurrence: US)
  Receive Date: 20170718
  Receipt Date: 20190109
  Transmission Date: 20190417
  Serious: No
  Sender: FDA-Public Use
  Company Number: US-PFIZER INC-2017310602

PATIENT
  Age: 46 Year
  Sex: Female

DRUGS (2)
  1. GENOTROPIN MQ [Suspect]
     Active Substance: SOMATROPIN
     Indication: GROWTH HORMONE DEFICIENCY
     Dosage: 0.4 MG, DAILY
     Dates: start: 20170518
  2. GENOTROPIN MQ [Suspect]
     Active Substance: SOMATROPIN
     Dosage: 0.2 MG AND 04 MG  (ALTERNATING DOSES) 7 DAYS A WEEK
     Dates: start: 20170518

REACTIONS (16)
  - Feeling hot [Unknown]
  - Pain [Unknown]
  - Blood triglycerides decreased [Unknown]
  - Low density lipoprotein increased [Unknown]
  - Hot flush [Unknown]
  - Carbon dioxide decreased [Unknown]
  - Blood calcium decreased [Unknown]
  - Red blood cell count increased [Unknown]
  - Thyroid disorder [Unknown]
  - Mean cell haemoglobin concentration decreased [Unknown]
  - Neutrophil count decreased [Unknown]
  - Fatigue [Unknown]
  - Serum ferritin decreased [Unknown]
  - Mean cell haemoglobin decreased [Unknown]
  - Insulin-like growth factor increased [Unknown]
  - White blood cell count decreased [Unknown]

NARRATIVE: CASE EVENT DATE: 20181116
